FAERS Safety Report 7210849-8 (Version None)
Quarter: 2011Q1

REPORT INFORMATION
  Report Type: 
  Country: None (occurrence: None)
  Receive Date: 20110105
  Receipt Date: 20101229
  Transmission Date: 20110831
  Serious: Yes (Other)
  Sender: FDA-Public Use
  Company Number: US-PFIZER INC-2010181381

PATIENT
  Sex: Male
  Weight: 86 kg

DRUGS (8)
  1. MESTINON [Concomitant]
     Indication: MYASTHENIA GRAVIS
     Dosage: 60 MG, 4X/DAY
     Route: 048
  2. METOPROLOL [Concomitant]
  3. PROSCAR [Concomitant]
  4. LIPITOR [Suspect]
     Dosage: 10 MG, 1X/DAY
     Dates: start: 20080101
  5. ACETYLSALICYLIC ACID [Concomitant]
     Dosage: 81 MG, UNK
  6. IMURAN [Concomitant]
     Indication: MYASTHENIA GRAVIS
     Dosage: 100 MG, 1X/DAY
     Route: 048
  7. LISINOPRIL [Concomitant]
  8. LIPITOR [Suspect]
     Indication: CARDIAC OPERATION
     Dosage: 20 MG, 1X/DAY
     Route: 048
     Dates: start: 20080501

REACTIONS (1)
  - HEPATITIS A [None]
